FAERS Safety Report 24675076 (Version 1)
Quarter: 2024Q4

REPORT INFORMATION
  Report Type: Spontaneous
  Country: CA (occurrence: CA)
  Receive Date: 20241128
  Receipt Date: 20241128
  Transmission Date: 20250115
  Serious: Yes (Hospitalization)
  Sender: ACCORD
  Company Number: None

PATIENT
  Age: 52 Year
  Sex: Female

DRUGS (1)
  1. DAPTOMYCIN [Suspect]
     Active Substance: DAPTOMYCIN
     Indication: Product used for unknown indication
     Dosage: 1 EVERY 24 HOURS
     Route: 042

REACTIONS (3)
  - Blood creatine phosphokinase increased [Recovering/Resolving]
  - Musculoskeletal pain [Recovering/Resolving]
  - Rhabdomyolysis [Recovering/Resolving]
